FAERS Safety Report 24756998 (Version 1)
Quarter: 2024Q4

REPORT INFORMATION
  Report Type: Spontaneous
  Country: US (occurrence: US)
  Receive Date: 20241220
  Receipt Date: 20241220
  Transmission Date: 20250114
  Serious: Yes (Other)
  Sender: APOTEX
  Company Number: US-APOTEX-2024AP019784

PATIENT
  Age: 44 Year
  Sex: Female

DRUGS (1)
  1. DIVALPROEX SODIUM [Suspect]
     Active Substance: DIVALPROEX SODIUM
     Indication: Epilepsy
     Dosage: UNK
     Route: 065

REACTIONS (4)
  - Hypoglycaemic seizure [Recovered/Resolved]
  - Carnitine deficiency [Recovered/Resolved]
  - Blood ketone body decreased [Recovered/Resolved]
  - Hypoglycaemia [Recovered/Resolved]
